FAERS Safety Report 4289487-5 (Version None)
Quarter: 2004Q1

REPORT INFORMATION
  Report Type: 
  Country: None (occurrence: None)
  Receive Date: 20040123
  Receipt Date: 20030411
  Transmission Date: 20041129
  Serious: Yes (Hospitalization)
  Sender: FDA-Public Use
  Company Number: M2003.3802

PATIENT
  Age: 65 Year
  Sex: Female
  Weight: 59 kg

DRUGS (1)
  1. NAPROXEN [Suspect]
     Indication: OSTEOARTHRITIS
     Dosage: UNK
     Route: 065
     Dates: start: 20020518, end: 20020624

REACTIONS (3)
  - ABDOMINAL PAIN UPPER [None]
  - CONCOMITANT DISEASE PROGRESSION [None]
  - GASTRIC CANCER [None]
